FAERS Safety Report 25554160 (Version 1)
Quarter: 2025Q3

REPORT INFORMATION
  Report Type: Spontaneous
  Country: US (occurrence: None)
  Receive Date: 20250714
  Receipt Date: 20250714
  Transmission Date: 20251020
  Serious: Yes (Hospitalization)
  Sender: FDA-CTU
  Company Number: None

PATIENT
  Age: 77 Year
  Sex: Female
  Weight: 78.75 kg

DRUGS (23)
  1. GAMMAGARD LIQUID [Suspect]
     Active Substance: HUMAN IMMUNOGLOBULIN G
     Indication: Hypogammaglobulinaemia
     Route: 042
     Dates: start: 20080709
  2. GAMMAGARD LIQUID [Suspect]
     Active Substance: HUMAN IMMUNOGLOBULIN G
     Indication: Hypogammaglobulinaemia
     Route: 042
  3. Actemra 60mg [Concomitant]
  4. Allegra Allergy 60mg [Concomitant]
  5. Amerge 1mg [Concomitant]
  6. DICLOFENAC [Concomitant]
     Active Substance: DICLOFENAC
  7. Fioricet 50-325-40mg [Concomitant]
  8. Hiprex 1mg [Concomitant]
  9. HYDROXYZINE [Concomitant]
     Active Substance: HYDROXYZINE HYDROCHLORIDE
  10. HYOSCYAMINE [Concomitant]
     Active Substance: HYOSCYAMINE
  11. Isbrela 50mg [Concomitant]
  12. Inderal 40mg [Concomitant]
  13. LIPITOR [Concomitant]
     Active Substance: ATORVASTATIN CALCIUM
  14. Meloxicam 200mg [Concomitant]
  15. METHOCARBAMOL [Concomitant]
     Active Substance: METHOCARBAMOL
  16. Micafungin 50mg IV [Concomitant]
  17. Miebo opth 1.338gm/mL [Concomitant]
  18. OXYCODONE [Concomitant]
     Active Substance: OXYCODONE
  19. Pilocarpine 5mg [Concomitant]
  20. Prednisone 6mg [Concomitant]
  21. PROLIA [Concomitant]
     Active Substance: DENOSUMAB
  22. Ryvow 50mg [Concomitant]
  23. Valtrex 500mg [Concomitant]

REACTIONS (3)
  - Visual impairment [None]
  - Cerebrovascular accident [None]
  - Atrial fibrillation [None]
